FAERS Safety Report 21499933 (Version 1)
Quarter: 2022Q4

REPORT INFORMATION
  Report Type: Spontaneous
  Country: CA (occurrence: CA)
  Receive Date: 20221024
  Receipt Date: 20221024
  Transmission Date: 20230112
  Serious: Yes (Other)
  Sender: FDA-Public Use
  Company Number: CA-PFIZER INC-2017342297

PATIENT
  Age: 65 Year
  Sex: Female

DRUGS (4)
  1. XELJANZ [Suspect]
     Active Substance: TOFACITINIB CITRATE
     Indication: Vitiligo
     Dosage: 5 MG, 2X/DAY
     Route: 048
     Dates: start: 20160821
  2. XELJANZ [Suspect]
     Active Substance: TOFACITINIB CITRATE
     Indication: Vasculitis
     Dosage: 5 MG, 2X/DAY
     Route: 048
     Dates: end: 201901
  3. XELJANZ [Suspect]
     Active Substance: TOFACITINIB CITRATE
     Indication: Rheumatoid arthritis
     Dosage: 5 MG, 2X/DAY
     Route: 048
     Dates: end: 2021
  4. XELJANZ [Suspect]
     Active Substance: TOFACITINIB CITRATE
     Indication: Polyarthritis

REACTIONS (3)
  - Knee operation [Unknown]
  - Illness [Unknown]
  - COVID-19 [Unknown]
